FAERS Safety Report 21346218 (Version 1)
Quarter: 2022Q3

REPORT INFORMATION
  Report Type: Report from Study
  Country: US (occurrence: US)
  Receive Date: 20220917
  Receipt Date: 20220917
  Transmission Date: 20221027
  Serious: Yes (Other)
  Sender: FDA-Public Use
  Company Number: US-AUROBINDO-AUR-APL-2022-036949

PATIENT
  Age: 79 Year
  Sex: Male

DRUGS (3)
  1. ERLOTINIB [Suspect]
     Active Substance: ERLOTINIB
     Indication: Non-small cell lung cancer stage IIIB
     Dosage: UNK
     Route: 065
  2. PEMETREXED [Concomitant]
     Active Substance: PEMETREXED
     Indication: Non-small cell lung cancer stage IIIB
     Dosage: UNK
     Route: 065
  3. CISPLATIN [Concomitant]
     Active Substance: CISPLATIN
     Indication: Non-small cell lung cancer stage IIIB
     Dosage: UNK
     Route: 065

REACTIONS (2)
  - Drug resistance [Unknown]
  - Off label use [Unknown]
